FAERS Safety Report 8050517-6 (Version None)
Quarter: 2012Q1

REPORT INFORMATION
  Report Type: 
  Country: None (occurrence: None)
  Receive Date: 20120117
  Receipt Date: 20111214
  Transmission Date: 20120608
  Serious: Yes (Other)
  Sender: FDA-Public Use
  Company Number: JP-ASTRAZENECA-2011SE76365

PATIENT
  Age: 28 Year
  Sex: Female

DRUGS (3)
  1. ROPIVACAINE HYDROCHLORIDE [Suspect]
     Dosage: DOSE UNKNWON
     Route: 008
  2. DIAZEPAM [Concomitant]
     Dosage: DOSE UNKNOWN
     Route: 065
  3. MAGNESIUM SULFATE HYDRATE [Concomitant]
     Dosage: DOSE UNKNOWN
     Route: 065

REACTIONS (5)
  - TOXICITY TO VARIOUS AGENTS [None]
  - CAESAREAN SECTION [None]
  - CONVULSION [None]
  - MATERNAL EXPOSURE DURING PREGNANCY [None]
  - ECLAMPSIA [None]
